FAERS Safety Report 25379139 (Version 2)
Quarter: 2025Q3

REPORT INFORMATION
  Report Type: Report from Study
  Country: CA (occurrence: CA)
  Receive Date: 20250530
  Receipt Date: 20250804
  Transmission Date: 20251021
  Serious: Yes (Hospitalization)
  Sender: BOEHRINGER INGELHEIM
  Company Number: CA-BoehringerIngelheim-2025-BI-073724

PATIENT
  Age: 80 Year
  Sex: Male

DRUGS (2)
  1. OFEV [Suspect]
     Active Substance: NINTEDANIB
     Indication: Idiopathic pulmonary fibrosis
     Dates: start: 20231111, end: 20250529
  2. OFEV [Suspect]
     Active Substance: NINTEDANIB

REACTIONS (1)
  - Large intestinal haemorrhage [Recovered/Resolved]

NARRATIVE: CASE EVENT DATE: 20250501
